FAERS Safety Report 24105976 (Version 1)
Quarter: 2024Q3

REPORT INFORMATION
  Report Type: Spontaneous
  Country: US (occurrence: None)
  Receive Date: 20240716
  Receipt Date: 20240716
  Transmission Date: 20241017
  Serious: Yes (Other)
  Sender: Public
  Company Number: None

PATIENT
  Age: 70 Year
  Sex: Female
  Weight: 60 kg

DRUGS (5)
  1. PEG-3350, SODIUM CHLORIDE, SODIUM BICARBONATE AND POTASSIUM CHLORIDE [Suspect]
     Active Substance: POLYETHYLENE GLYCOL 3350\POTASSIUM CHLORIDE\SODIUM BICARBONATE\SODIUM CHLORIDE
     Indication: Colonoscopy
     Dosage: OTHER QUANTITY : 1 ADD WATER TO FILL?OTHER FREQUENCY : 8 OZ EVERY 10 MIN?
     Route: 048
     Dates: start: 20240714, end: 20240714
  2. METOPROLOL [Concomitant]
     Active Substance: METOPROLOL
  3. ELIQUIS [Concomitant]
     Active Substance: APIXABAN
  4. OMEPRAZOLE [Concomitant]
     Active Substance: OMEPRAZOLE
  5. FLOVENT HFA [Concomitant]
     Active Substance: FLUTICASONE PROPIONATE

REACTIONS (11)
  - Hypersensitivity [None]
  - Flushing [None]
  - Feeling hot [None]
  - Back pain [None]
  - Renal pain [None]
  - Urticaria [None]
  - Pruritus [None]
  - Erythema [None]
  - Chills [None]
  - Therapy cessation [None]
  - Vomiting [None]

NARRATIVE: CASE EVENT DATE: 20240714
